FAERS Safety Report 5485492-1 (Version None)
Quarter: 2007Q4

REPORT INFORMATION
  Report Type: 
  Country: None (occurrence: None)
  Receive Date: 20071002
  Receipt Date: 20070710
  Transmission Date: 20080405
  Serious: No
  Sender: FDA-Public Use
  Company Number: 2007057795

PATIENT
  Age: 50 Year
  Sex: Male
  Weight: 84 kg

DRUGS (3)
  1. DEPO-TESTOSTERONE [Suspect]
     Indication: HYPOGONADISM
     Dosage: (200 MG, 1 IN 1 WK), INTRAMUSCULAR
     Route: 030
     Dates: start: 19960101
  2. NORVIR [Suspect]
     Indication: HIV INFECTION
     Dosage: 100 MG (100 MG, 1 IN 1 D), ORAL
     Route: 048
     Dates: start: 20040101
  3. REYATAZ [Concomitant]

REACTIONS (2)
  - BLOOD TESTOSTERONE INCREASED [None]
  - DRUG INTERACTION [None]
